FAERS Safety Report 5520794-1 (Version None)
Quarter: 2007Q4

REPORT INFORMATION
  Report Type: 
  Country: None (occurrence: None)
  Receive Date: 20071116
  Receipt Date: 20071116
  Transmission Date: 20080405
  Serious: No
  Sender: FDA-Public Use
  Company Number: None

PATIENT
  Age: 23 Year

DRUGS (1)
  1. DILAUDID [Suspect]
     Indication: PAIN
     Dosage: 1MG X1 IV PUSH
     Route: 042
     Dates: start: 20070721, end: 20070721

REACTIONS (2)
  - ERYTHEMA [None]
  - PRURITUS [None]
